FAERS Safety Report 15852655 (Version 2)
Quarter: 2019Q1

REPORT INFORMATION
  Report Type: Report from Study
  Country: CO (occurrence: CO)
  Receive Date: 20190122
  Receipt Date: 20190206
  Transmission Date: 20190417
  Serious: Yes (Hospitalization)
  Sender: FDA-Public Use
  Company Number: PHHY2018CO199450

PATIENT
  Age: 68 Year
  Sex: Male
  Weight: 54 kg

DRUGS (3)
  1. VOTRIENT [Suspect]
     Active Substance: PAZOPANIB HYDROCHLORIDE
     Indication: SARCOMA
     Dosage: 600 MG, QD
     Route: 048
     Dates: start: 20181212, end: 20181230
  2. HYDROCODONE BITARTRATE AND ACETAMINOPHEN [Concomitant]
     Active Substance: ACETAMINOPHEN\HYDROCODONE BITARTRATE
     Indication: PAIN
     Dosage: OCCASIONALY
     Route: 065
  3. LEVOTHYROXINE. [Concomitant]
     Active Substance: LEVOTHYROXINE
     Indication: PRODUCT USED FOR UNKNOWN INDICATION
     Route: 048

REACTIONS (5)
  - Hypertension [Recovering/Resolving]
  - Malaise [Unknown]
  - Headache [Unknown]
  - Abnormal behaviour [Unknown]
  - Tension [Unknown]

NARRATIVE: CASE EVENT DATE: 201812
